FAERS Safety Report 15585823 (Version 1)
Quarter: 2018Q4

REPORT INFORMATION
  Report Type: Spontaneous
  Country: CN (occurrence: CN)
  Receive Date: 20181105
  Receipt Date: 20181105
  Transmission Date: 20190205
  Serious: Yes (Death, Other)
  Sender: FDA-Public Use
  Company Number: CN-CORDEN PHARMA LATINA S.P.A.-CN-2018COR000125

PATIENT
  Sex: Male

DRUGS (12)
  1. ETOPOSIDE. [Suspect]
     Active Substance: ETOPOSIDE
     Indication: BURKITT^S LEUKAEMIA
     Dosage: 100 MG/M2 OVER 2 HOURS ON DAYS 3-5
     Route: 042
  2. IFOSFAMIDE. [Suspect]
     Active Substance: IFOSFAMIDE
     Indication: BURKITT^S LEUKAEMIA
     Dosage: 1,200 MG/M2 OVER 2 HOURS ON DAY 1-5
     Route: 042
  3. METHOTREXATE. [Suspect]
     Active Substance: METHOTREXATE
     Indication: BURKITT^S LEUKAEMIA
     Dosage: 5,000 MG/M2 OVER 24 HOURS ON DAY 1
     Route: 042
  4. CYCLOPHOSPHAMIDE. [Suspect]
     Active Substance: CYCLOPHOSPHAMIDE
     Dosage: 200 MG/M2 OVER 1 HOUR ON DAYS 2, 3, 4
     Route: 042
  5. DEXAMETHASONE. [Suspect]
     Active Substance: DEXAMETHASONE
     Indication: BURKITT^S LEUKAEMIA
     Dosage: UNK
  6. MESNA. [Suspect]
     Active Substance: MESNA
     Indication: BURKITT^S LEUKAEMIA
     Dosage: 400 MG/M2, 0, +4, +8 H
     Route: 065
  7. CYTARABINE. [Suspect]
     Active Substance: CYTARABINE
     Indication: BURKITT^S LEUKAEMIA
     Dosage: 2,000 MG/M2 OVER 3 HOURS ON DAY 4 (Q12 H)
     Route: 042
  8. RITUXIMAB. [Suspect]
     Active Substance: RITUXIMAB
     Indication: BURKITT^S LEUKAEMIA
     Route: 065
  9. CYCLOPHOSPHAMIDE. [Suspect]
     Active Substance: CYCLOPHOSPHAMIDE
     Indication: BURKITT^S LEUKAEMIA
     Dosage: 800 MG/M2 OVER 2 HOURS, DAY 1
     Route: 042
  10. DOXORUBICIN [Suspect]
     Active Substance: DOXORUBICIN
     Indication: BURKITT^S LEUKAEMIA
     Dosage: 20 MG/M2, OVER 2 HOURS ON DAY 2,3
     Route: 042
  11. PREDNISONE. [Suspect]
     Active Substance: PREDNISONE
     Indication: BURKITT^S LEUKAEMIA
     Dosage: 60 MG/M2, DAYS 1-7
     Route: 048
  12. VINDESINE [Suspect]
     Active Substance: VINDESINE
     Indication: BURKITT^S LEUKAEMIA
     Dosage: 3 MG/M2 (MAX 5 MG), DAY 1
     Route: 042

REACTIONS (3)
  - Respiratory tract infection [Fatal]
  - Stomatitis [Unknown]
  - Venous thrombosis [Unknown]
